FAERS Safety Report 10009470 (Version 2)
Quarter: 2014Q1

REPORT INFORMATION
  Report Type: Spontaneous
  Country: US (occurrence: US)
  Receive Date: 20140313
  Receipt Date: 20140313
  Transmission Date: 20141002
  Serious: No
  Sender: FDA-Public Use
  Company Number: US-INCYTE CORPORATION-2012IN001536

PATIENT
  Age: 76 Year
  Sex: Male
  Weight: 88.89 kg

DRUGS (11)
  1. JAKAFI [Suspect]
     Indication: MYELOFIBROSIS
     Dosage: 10 MG, BID
     Route: 048
     Dates: start: 20120208, end: 201203
  2. JAKAFI [Suspect]
     Dosage: 5 MG, BID
     Route: 048
     Dates: start: 201203
  3. SIMVASTATIN [Concomitant]
     Dosage: UNK
  4. CITALOPRAM HYDROBROMIDE [Concomitant]
     Dosage: UNK
  5. METOPROLOL [Concomitant]
  6. LOSARTAN [Concomitant]
  7. GLIMEPIRIDE [Concomitant]
  8. ALLOPURINOL [Concomitant]
  9. AMLODIPINE [Concomitant]
  10. TRAMADOL [Concomitant]
  11. ASPIRIN [Concomitant]
     Dosage: 81 MG, UNK

REACTIONS (2)
  - Gastrooesophageal reflux disease [Unknown]
  - Blood count abnormal [Recovered/Resolved]
